FAERS Safety Report 9064715 (Version 2)
Quarter: 2013Q1

REPORT INFORMATION
  Report Type: Report from Study
  Country: US (occurrence: US)
  Receive Date: 20130130
  Receipt Date: 20130225
  Transmission Date: 20140127
  Serious: Yes (Other)
  Sender: FDA-Public Use
  Company Number: US-JNJFOC-20130105978

PATIENT
  Age: 76 None
  Sex: Female

DRUGS (7)
  1. SIMPONI [Suspect]
     Indication: RHEUMATOID ARTHRITIS
     Route: 058
     Dates: start: 20120328, end: 20120928
  2. SYNTHROID [Concomitant]
     Indication: HYPOTHYROIDISM
  3. METHOTREXATE [Concomitant]
     Dates: start: 201005
  4. PREDNISONE [Concomitant]
     Dates: start: 201005, end: 20111106
  5. FOLIC ACID [Concomitant]
  6. MULTIVITAMINS [Concomitant]
  7. ACIDOPHILUS [Concomitant]

REACTIONS (2)
  - Breast cyst [Not Recovered/Not Resolved]
  - Endometritis [Recovering/Resolving]
